FAERS Safety Report 8795268 (Version 2)
Quarter: 2013Q1

REPORT INFORMATION
  Report Type: Report from Study
  Country: FR (occurrence: FR)
  Receive Date: 20120917
  Receipt Date: 20130221
  Transmission Date: 20140127
  Serious: Yes (Other)
  Sender: FDA-Public Use
  Company Number: FR-VERTEX PHARMACEUTICAL INC.-000000000000000790

PATIENT
  Age: 48 Year
  Sex: Male
  Weight: 75 kg

DRUGS (15)
  1. VX-950 (TELAPREVIR) [Suspect]
     Indication: HEPATITIS C
     Dosage: 750 MG, QD
     Dates: start: 20111018, end: 20120110
  2. COPEGUS [Suspect]
     Indication: HEPATITIS C
     Dosage: 400 MG, QD
     Dates: start: 20120313, end: 20120525
  3. COPEGUS [Suspect]
     Dosage: 1200 MG, QD
     Dates: start: 20110321, end: 20111116
  4. COPEGUS [Suspect]
     Dosage: 1000 MG, QD
     Dates: start: 20111116, end: 20111220
  5. COPEGUS [Suspect]
     Dosage: 800 MG, QD
     Dates: start: 20111230, end: 20120313
  6. COPEGUS [Suspect]
     Dosage: 800 MG, QD
     Dates: start: 20111220, end: 20111230
  7. PEGASYS [Suspect]
     Indication: HEPATITIS C
     Dosage: WEEKLY
     Dates: start: 20120513, end: 20120525
  8. PEGASYS [Suspect]
     Dosage: WEEKLY
     Dates: start: 20110323, end: 20120513
  9. TRUVADA [Suspect]
     Indication: HIV INFECTION
     Dosage: DOSAGE FORM: UNSPECIFIED, 1CP
     Route: 065
     Dates: start: 20080905
  10. NORVIR [Suspect]
     Indication: HIV INFECTION
     Dosage: DOSAGE FORM: UNSPECIFIED, 100
     Route: 065
     Dates: start: 20080905
  11. DEXERYL [Concomitant]
     Indication: DRY SKIN
     Dosage: UNK
     Route: 003
     Dates: start: 20110809
  12. AMYCOR [Concomitant]
     Indication: FUNGAL INFECTION
     Dosage: 1 %, BID
     Dates: start: 20110809
  13. NEORECORMON [Concomitant]
     Indication: HAEMOGLOBIN DECREASED
     Dosage: 30000 IU, BID
     Dates: start: 20111102, end: 20120715
  14. IMODIUM [Concomitant]
     Indication: ANTIDIARRHOEAL SUPPORTIVE CARE
     Dosage: 2 MG, BID
     Dates: start: 20111116
  15. REYATAZ [Concomitant]
     Indication: HIV INFECTION
     Dosage: 300
     Dates: start: 20080905

REACTIONS (1)
  - Autoimmune haemolytic anaemia [Recovered/Resolved]
